FAERS Safety Report 6445451 (Version 4)
Quarter: 2012Q4

REPORT INFORMATION
  Report Type: 
  Country: GB (occurrence: GB)
  Receive Date: 20071019
  Receipt Date: 20120912
  Transmission Date: 20130627
  Serious: Yes (Other)
  Sender: FDA-Public Use
  Company Number: GB-PURDUE-GBR_2007_0003352

PATIENT
  Age: 36 None
  Sex: Female
  Weight: 2.75 kg

DRUGS (2)
  1. MORPHINE SULFATE [Suspect]
     Indication: PRODUCT USED FOR UNKNOWN INDICATION
     Route: 064
  2. LABETALOL [Concomitant]
     Indication: HYPERTENSION
     Route: 064

REACTIONS (3)
  - Somnolence neonatal [Recovered/Resolved]
  - Neonatal respiratory depression [Recovered/Resolved]
  - Foetal exposure during pregnancy [Recovered/Resolved]
